FAERS Safety Report 9129658 (Version 2)
Quarter: 2013Q2

REPORT INFORMATION
  Report Type: Spontaneous
  Country: US (occurrence: US)
  Receive Date: 20130228
  Receipt Date: 20130429
  Transmission Date: 20140414
  Serious: Yes (Hospitalization, Other)
  Sender: FDA-Public Use
  Company Number: US-ASTRAZENECA-2013SE11678

PATIENT
  Age: 64 Year
  Sex: Female
  Weight: 47.2 kg

DRUGS (8)
  1. SYMBICORT [Suspect]
     Indication: BRONCHITIS CHRONIC
     Dosage: 160/4.5 MCG, TWO PUFFS, TWO TIMES A DAY
     Route: 055
     Dates: end: 20130103
  2. SYMBICORT [Suspect]
     Indication: BRONCHITIS CHRONIC
     Dosage: 160/4.5 MCG, TWO PUFFS, TWO TIMES A DAY
     Route: 055
     Dates: start: 20130110
  3. SYMBICORT [Suspect]
     Indication: BRONCHITIS CHRONIC
     Dosage: 1 INHALATIONS , 2 TIMES A DAY
     Route: 055
  4. SYMBICORT [Suspect]
     Indication: BRONCHITIS CHRONIC
     Dosage: 2 INHALATIONS , 2 TIMES A DAY
     Route: 055
  5. ZYRTEC [Concomitant]
     Indication: ALLERGY TO CHEMICALS
     Dosage: 5-10 MG DAILY
     Route: 048
  6. ZYRTEC [Concomitant]
     Indication: HYPERSENSITIVITY
     Dosage: 5-10 MG DAILY
     Route: 048
  7. FLUCONONASE [Concomitant]
     Indication: ALLERGY TO CHEMICALS
     Dosage: 1 SPRAY EACH NOSTRIL DAILY
     Route: 045
     Dates: start: 201301
  8. FLUCONONASE [Concomitant]
     Indication: HYPERSENSITIVITY
     Dosage: 1 SPRAY EACH NOSTRIL DAILY
     Route: 045
     Dates: start: 201301

REACTIONS (5)
  - Influenza [Recovered/Resolved]
  - Pneumothorax [Recovered/Resolved]
  - Oxygen saturation decreased [Recovered/Resolved]
  - Off label use [Unknown]
  - Intentional drug misuse [Unknown]
